FAERS Safety Report 5007042-6 (Version None)
Quarter: 2006Q2

REPORT INFORMATION
  Report Type: 
  Country: None (occurrence: None)
  Receive Date: 20060517
  Receipt Date: 20060510
  Transmission Date: 20061013
  Serious: Yes (Other)
  Sender: FDA-Public Use
  Company Number: GXKR2006DE01806

PATIENT
  Age: 62 Year
  Sex: Female
  Weight: 82 kg

DRUGS (2)
  1. CLARITHROMYCIN [Suspect]
     Dosage: 500 MG, QD, ORAL
     Route: 048
     Dates: start: 20051125, end: 20051130
  2. METOPROLOL SUCCINATE [Concomitant]

REACTIONS (2)
  - ANOSMIA [None]
  - PAROSMIA [None]
